FAERS Safety Report 10753008 (Version 1)
Quarter: 2015Q1

REPORT INFORMATION
  Report Type: Other
  Country: FR (occurrence: FR)
  Receive Date: 20150130
  Receipt Date: 20150130
  Transmission Date: 20150721
  Serious: Yes (Hospitalization)
  Sender: FDA-Public Use
  Company Number: FR-OPTIMER-20150021

PATIENT
  Age: 85 Year
  Sex: Female

DRUGS (11)
  1. DIFICLIR [Suspect]
     Active Substance: FIDAXOMICIN
     Indication: CLOSTRIDIUM DIFFICILE COLITIS
     Dosage: 200 MG, BID
     Route: 048
     Dates: start: 20140917, end: 20140923
  2. INEXIUM [Concomitant]
     Active Substance: ESOMEPRAZOLE
     Dosage: 40 MG, QD
     Route: 048
     Dates: start: 20140722, end: 20140923
  3. KARDEGIC [Concomitant]
     Active Substance: ASPIRIN LYSINE
     Dosage: 75 MG, UNK
  4. VANCOMYCIN [Concomitant]
     Active Substance: VANCOMYCIN
     Dosage: UNK
     Route: 048
     Dates: start: 20140910, end: 20140917
  5. ORBENINE [Suspect]
     Active Substance: CLOXACILLIN SODIUM
     Indication: SEPTIC SHOCK
     Dosage: UNK
     Dates: start: 20140809, end: 20140822
  6. AMIKLIN [Concomitant]
     Active Substance: AMIKACIN SULFATE
     Dosage: UNK
     Route: 048
     Dates: start: 20140914, end: 20140917
  7. TAVANIC [Suspect]
     Active Substance: LEVOFLOXACIN
     Indication: DECUBITUS ULCER
     Dosage: UNK
     Route: 048
     Dates: start: 20140917, end: 20140923
  8. VANCOMYCIN [Concomitant]
     Active Substance: VANCOMYCIN
     Indication: SEPTIC SHOCK
     Dosage: UNK
     Route: 048
     Dates: start: 20140809
  9. NOVONORM [Concomitant]
     Active Substance: REPAGLINIDE
     Dosage: UNK
     Dates: end: 20140923
  10. FLAGYL [Concomitant]
     Active Substance: METRONIDAZOLE\METRONIDAZOLE HYDROCHLORIDE
     Indication: CLOSTRIDIUM COLITIS
     Dosage: 500 MG, TID
     Route: 048
     Dates: start: 20140903, end: 20140917
  11. ROCEPHINE [Concomitant]
     Active Substance: CEFTRIAXONE SODIUM
     Dosage: UNK
     Dates: start: 20140914, end: 20140917

REACTIONS (1)
  - Agranulocytosis [Recovered/Resolved]

NARRATIVE: CASE EVENT DATE: 20140922
